FAERS Safety Report 17411794 (Version 1)
Quarter: 2020Q1

REPORT INFORMATION
  Report Type: Spontaneous
  Country: SA (occurrence: SA)
  Receive Date: 20200213
  Receipt Date: 20200213
  Transmission Date: 20200409
  Serious: Yes (Hospitalization, Other)
  Sender: FDA-Public Use
  Company Number: SA-UNICHEM PHARMACEUTICALS (USA) INC-UCM202002-000164

PATIENT
  Age: 8 Year
  Sex: Female
  Weight: 16.2 kg

DRUGS (2)
  1. CLONIDINE HCL [Suspect]
     Active Substance: CLONIDINE HYDROCHLORIDE
     Indication: SOMATOTROPIN STIMULATION TEST
     Dosage: CLONIDINE 0.15MG/M 2 WAS GIVEN ORALLY (TOTAL DOSE OF 0.18 MG)
     Route: 048
  2. ARGININE [Suspect]
     Active Substance: ARGININE
     Indication: SOMATOTROPIN STIMULATION TEST
     Dosage: A DOSE OF 0.5 G/KG (TOTAL DOSE OF 8.1 G) INFUSED INTRAVENOUSLY OVER 30 MIN
     Route: 042

REACTIONS (5)
  - Pulse absent [Recovered/Resolved]
  - Unresponsive to stimuli [Recovered/Resolved]
  - Poor peripheral circulation [Recovered/Resolved]
  - Hypotension [Recovered/Resolved]
  - Product use in unapproved indication [Unknown]
